FAERS Safety Report 24166822 (Version 1)
Quarter: 2024Q3

REPORT INFORMATION
  Report Type: Report from Study
  Country: US (occurrence: US)
  Receive Date: 20240802
  Receipt Date: 20240802
  Transmission Date: 20241017
  Serious: Yes (Hospitalization, Other)
  Sender: ROCHE
  Company Number: US-ROCHE-10000045993

PATIENT
  Age: 71 Year
  Sex: Female
  Weight: 52.62 kg

DRUGS (3)
  1. OCREVUS [Suspect]
     Active Substance: OCRELIZUMAB
     Indication: Relapsing-remitting multiple sclerosis
     Route: 042
     Dates: start: 2023, end: 202401
  2. BACTRIM [Suspect]
     Active Substance: SULFAMETHOXAZOLE\TRIMETHOPRIM
     Indication: Cystitis
     Route: 048
  3. SEPTRA [Suspect]
     Active Substance: SULFAMETHOXAZOLE\TRIMETHOPRIM
     Indication: Cystitis
     Route: 048

REACTIONS (12)
  - Sepsis [Recovered/Resolved]
  - Hypotension [Recovered/Resolved]
  - Cystitis [Recovered/Resolved]
  - Lung disorder [Unknown]
  - Pancreatitis [Unknown]
  - Pyrexia [Recovered/Resolved]
  - Tremor [Recovered/Resolved]
  - Swelling [Recovered/Resolved]
  - Abdominal discomfort [Recovered/Resolved]
  - Pneumonia [Unknown]
  - Dehydration [Recovered/Resolved]
  - Nephritis [Unknown]

NARRATIVE: CASE EVENT DATE: 20240601
